FAERS Safety Report 15472375 (Version 1)
Quarter: 2018Q4

REPORT INFORMATION
  Report Type: Spontaneous
  Country: US (occurrence: US)
  Receive Date: 20181008
  Receipt Date: 20181008
  Transmission Date: 20190205
  Serious: Yes (Other)
  Sender: FDA-Public Use
  Company Number: US-APOTEX-2018AP021982

PATIENT
  Age: 54 Year
  Sex: Male

DRUGS (8)
  1. SOTALOL. [Suspect]
     Active Substance: SOTALOL
     Indication: VENTRICULAR TACHYCARDIA
  2. MEXILETINE [Suspect]
     Active Substance: MEXILETINE
     Indication: VENTRICULAR TACHYCARDIA
  3. SOTALOL. [Suspect]
     Active Substance: SOTALOL
     Indication: CARDIOMYOPATHY
     Dosage: UNK
     Route: 065
  4. AMIODARONE [Suspect]
     Active Substance: AMIODARONE
     Indication: VENTRICULAR TACHYCARDIA
  5. QUINIDINE [Suspect]
     Active Substance: QUINIDINE
     Indication: CARDIOMYOPATHY
     Dosage: UNK
     Route: 065
  6. AMIODARONE [Suspect]
     Active Substance: AMIODARONE
     Indication: CARDIOMYOPATHY
     Dosage: UNK
     Route: 065
  7. QUINIDINE [Suspect]
     Active Substance: QUINIDINE
     Indication: VENTRICULAR TACHYCARDIA
  8. MEXILETINE [Suspect]
     Active Substance: MEXILETINE
     Indication: CARDIOMYOPATHY
     Dosage: UNK
     Route: 065

REACTIONS (1)
  - Drug ineffective [Unknown]
